FAERS Safety Report 6955278-7 (Version None)
Quarter: 2010Q3

REPORT INFORMATION
  Report Type: 
  Country: None (occurrence: None)
  Receive Date: 20100830
  Receipt Date: 20100816
  Transmission Date: 20110219
  Serious: Yes (Other)
  Sender: FDA-Public Use
  Company Number: PHHY2010BR53545

PATIENT
  Sex: Male
  Weight: 20 kg

DRUGS (2)
  1. TRILEPTAL [Suspect]
     Indication: EPILEPSY
     Dosage: 5 ML, Q12H
     Route: 048
     Dates: start: 20070101
  2. FRISIUM [Concomitant]
     Indication: NERVOUS SYSTEM DISORDER
     Dosage: 0.5 DF, BID
     Route: 048

REACTIONS (9)
  - ADENOIDAL DISORDER [None]
  - AGITATION [None]
  - CONVULSION [None]
  - DRUG INEFFECTIVE [None]
  - FALL [None]
  - INAPPROPRIATE AFFECT [None]
  - PETIT MAL EPILEPSY [None]
  - TIC [None]
  - UNRESPONSIVE TO STIMULI [None]
